FAERS Safety Report 5013337-2 (Version None)
Quarter: 2006Q2

REPORT INFORMATION
  Report Type: 
  Country: None (occurrence: None)
  Receive Date: 20060530
  Receipt Date: 20060414
  Transmission Date: 20061013
  Serious: No
  Sender: FDA-Public Use
  Company Number: US-GLAXOSMITHKLINE-A0601820A

PATIENT
  Age: 52 Year
  Sex: Male

DRUGS (6)
  1. WELLBUTRIN XL [Suspect]
     Indication: DEPRESSION
     Dosage: 300MG PER DAY
     Route: 048
     Dates: start: 20060406
  2. LOTENSIN [Concomitant]
  3. OXYCODONE [Concomitant]
  4. MOBIC [Concomitant]
  5. ZETIA [Concomitant]
  6. HYDROCHLOROTHIAZIDE [Concomitant]

REACTIONS (6)
  - AGITATION [None]
  - DISTURBANCE IN ATTENTION [None]
  - ENERGY INCREASED [None]
  - HYPERVIGILANCE [None]
  - INSOMNIA [None]
  - TENSION [None]
